FAERS Safety Report 4941368-7 (Version None)
Quarter: 2006Q1

REPORT INFORMATION
  Report Type: 
  Country: None (occurrence: None)
  Receive Date: 20060313
  Receipt Date: 20060301
  Transmission Date: 20060701
  Serious: Yes (Hospitalization)
  Sender: FDA-Public Use
  Company Number: JP-MERCK-0603USA00874

PATIENT
  Age: 36 Year
  Sex: Female

DRUGS (5)
  1. ALDOMET [Suspect]
     Indication: HYPERTENSION
     Route: 048
     Dates: start: 20051001, end: 20060218
  2. ALDOMET [Suspect]
     Route: 048
     Dates: start: 20060226, end: 20060301
  3. ADALAT [Concomitant]
     Indication: HYPERTENSION
     Route: 048
     Dates: start: 20051001, end: 20060218
  4. ADALAT [Concomitant]
     Route: 048
     Dates: start: 20060222
  5. FERRUM [Concomitant]
     Indication: ANAEMIA
     Route: 048

REACTIONS (5)
  - ANAEMIA [None]
  - BLOOD SODIUM INCREASED [None]
  - DEPRESSED LEVEL OF CONSCIOUSNESS [None]
  - METRORRHAGIA [None]
  - PYREXIA [None]
